FAERS Safety Report 14947504 (Version 2)
Quarter: 2018Q2

REPORT INFORMATION
  Report Type: Spontaneous
  Country: GB (occurrence: GB)
  Receive Date: 20180529
  Receipt Date: 20180531
  Transmission Date: 20180711
  Serious: Yes (Death, Hospitalization)
  Sender: FDA-Public Use
  Company Number: GB-PFIZER INC-2018204200

PATIENT
  Age: 31 Year
  Sex: Male

DRUGS (4)
  1. TOPOTECAN HYDROCHLORIDE. [Suspect]
     Active Substance: TOPOTECAN HYDROCHLORIDE
     Indication: BURKITT^S LYMPHOMA
     Dosage: 1MGM-2 DAY-1
     Route: 042
  2. THIOTEPA. [Suspect]
     Active Substance: THIOTEPA
     Indication: BURKITT^S LYMPHOMA
     Dosage: 15 MGM-2 OVER 4 H
     Route: 042
  3. VINORELBINE [Suspect]
     Active Substance: VINORELBINE\VINORELBINE TARTRATE
     Indication: BURKITT^S LYMPHOMA
     Dosage: 20 MGM-2
     Route: 042
  4. GEMCITABINE HYDROCHLORIDE. [Suspect]
     Active Substance: GEMCITABINE HYDROCHLORIDE
     Indication: BURKITT^S LYMPHOMA
     Dosage: 3600MGM-2 OVER 6 H
     Route: 042

REACTIONS (2)
  - Pneumonia bacterial [Fatal]
  - Bone marrow failure [Unknown]
